FAERS Safety Report 10673584 (Version 1)
Quarter: 2014Q4

REPORT INFORMATION
  Report Type: Spontaneous
  Country: US (occurrence: US)
  Receive Date: 20141224
  Receipt Date: 20141224
  Transmission Date: 20150529
  Serious: No
  Sender: FDA-Public Use
  Company Number: US-ASTRAZENECA-2014SE76008

PATIENT
  Age: 30498 Day
  Sex: Male
  Weight: 86.2 kg

DRUGS (8)
  1. BRILINTA [Suspect]
     Active Substance: TICAGRELOR
     Indication: ANTICOAGULANT THERAPY
     Route: 048
     Dates: start: 201403
  2. GLYBURIDE. [Concomitant]
     Active Substance: GLYBURIDE
     Indication: BLOOD GLUCOSE ABNORMAL
     Route: 048
  3. TOPROL XL [Suspect]
     Active Substance: METOPROLOL SUCCINATE
     Route: 048
  4. PROSTATIN [Concomitant]
     Active Substance: ARCTOSTAPHYLOS UVA-URSI LEAF\URTICA DIOICA
     Indication: BLOOD CHOLESTEROL ABNORMAL
     Route: 048
  5. HCTZ/TRIAMTERENE [Concomitant]
     Indication: POLLAKIURIA
     Route: 048
  6. HYTRIN TERAZOSIN [Concomitant]
     Route: 048
  7. LISINOPRIL. [Suspect]
     Active Substance: LISINOPRIL
     Route: 048
  8. ZYTEC [Concomitant]
     Indication: HYPERSENSITIVITY
     Route: 048

REACTIONS (4)
  - Type 2 diabetes mellitus [Unknown]
  - Off label use [Unknown]
  - Contusion [Unknown]
  - Hypertension [Unknown]

NARRATIVE: CASE EVENT DATE: 201403
